FAERS Safety Report 8252541-7 (Version None)
Quarter: 2012Q2

REPORT INFORMATION
  Report Type: 
  Country: None (occurrence: None)
  Receive Date: 20120402
  Receipt Date: 20120330
  Transmission Date: 20120825
  Serious: Yes (Other)
  Sender: FDA-Public Use
  Company Number: US-PFIZER INC-2012081707

PATIENT
  Sex: Male
  Weight: 90.703 kg

DRUGS (3)
  1. ZOLOFT [Suspect]
     Indication: ANXIETY
     Dosage: 50 MG, DAILY
     Route: 048
     Dates: start: 20110101, end: 20111201
  2. ZOLOFT [Suspect]
     Indication: OBSESSIVE-COMPULSIVE DISORDER
     Dosage: 100 MG, 1X/DAY
     Dates: start: 20111201, end: 20120201
  3. ZOLOFT [Suspect]
     Dosage: 75 MG, 1X/DAY
     Dates: start: 20120201

REACTIONS (6)
  - DRUG INEFFECTIVE [None]
  - THINKING ABNORMAL [None]
  - IRRITABILITY [None]
  - MEMORY IMPAIRMENT [None]
  - MENTAL DISORDER [None]
  - FATIGUE [None]
